FAERS Safety Report 9051880 (Version 1)
Quarter: 2013Q1

REPORT INFORMATION
  Report Type: Spontaneous
  Country: FR (occurrence: FR)
  Receive Date: 20130207
  Receipt Date: 20130207
  Transmission Date: 20140127
  Serious: Yes (Life-Threatening, Hospitalization)
  Sender: FDA-Public Use
  Company Number: FR-ACCORD-016237

PATIENT
  Age: 35 Year
  Sex: Male

DRUGS (5)
  1. IRINOTECAN HYDROCHLORIDE [Suspect]
     Indication: COLON CANCER
     Dosage: EIGHT COURSE
  2. OXALIPLATIN [Suspect]
     Indication: COLON CANCER
     Dosage: TEN COURSES THEN EIGHT COURSE
  3. FLUOROURACIL [Suspect]
     Indication: COLON CANCER
     Dosage: TEN COURSES THEN EIGHT COURSE
  4. FOLINIC ACID [Concomitant]
     Indication: COLON CANCER
     Dosage: TEN COURSES THEN EIGHT COURSE
  5. CETUXIMAB [Suspect]
     Indication: COLON CANCER
     Dosage: TEN COURSES

REACTIONS (5)
  - Haemolytic anaemia [Recovering/Resolving]
  - Shock [Recovering/Resolving]
  - Multi-organ failure [Recovering/Resolving]
  - Thrombocytopenia [Recovering/Resolving]
  - Leukopenia [Recovering/Resolving]
